FAERS Safety Report 22519844 (Version 1)
Quarter: 2023Q2

REPORT INFORMATION
  Report Type: Spontaneous
  Country: US (occurrence: None)
  Receive Date: 20230602
  Receipt Date: 20230602
  Transmission Date: 20230721
  Serious: Yes (Hospitalization)
  Sender: FDA-Public Use
  Company Number: None

PATIENT
  Sex: Female

DRUGS (3)
  1. ADCIRCA [Suspect]
     Active Substance: TADALAFIL
     Indication: Pulmonary arterial hypertension
     Dosage: 40MG ONCE DAILY PO
     Route: 048
     Dates: start: 202006
  2. TREPROSTINIL [Suspect]
     Active Substance: TREPROSTINIL
  3. ADCIRCA [Suspect]
     Active Substance: TADALAFIL

REACTIONS (2)
  - Fall [None]
  - Haemorrhage [None]
